FAERS Safety Report 20456685 (Version 2)
Quarter: 2022Q1

REPORT INFORMATION
  Report Type: Report from Study
  Country: GB (occurrence: GB)
  Receive Date: 20220210
  Receipt Date: 20220311
  Transmission Date: 20220423
  Serious: Yes (Other)
  Sender: FDA-Public Use
  Company Number: GB-PFIZER INC-202101652884

PATIENT
  Age: 45 Year
  Sex: Female
  Weight: 88.7 kg

DRUGS (15)
  1. ABROCITINIB [Suspect]
     Active Substance: ABROCITINIB
     Indication: Dermatitis atopic
     Dosage: ONCE DAILY
     Route: 048
     Dates: start: 20190221, end: 20211102
  2. SERETIDE [Concomitant]
     Active Substance: FLUTICASONE PROPIONATE\SALMETEROL XINAFOATE
     Indication: Asthma
     Dosage: UNK
     Route: 055
     Dates: start: 20190815
  3. METFORMIN [Concomitant]
     Active Substance: METFORMIN HYDROCHLORIDE
     Indication: Polycystic ovaries
     Dosage: UNK
     Dates: start: 20200824
  4. PROTOPIC [Concomitant]
     Active Substance: TACROLIMUS
     Indication: Dermatitis atopic
     Dosage: UNK
     Dates: start: 20190221
  5. ELOCON [Concomitant]
     Active Substance: MOMETASONE FUROATE
     Indication: Dermatitis atopic
     Dosage: SCALP LOTION
     Dates: start: 20210915
  6. VITAMIN D NOS [Concomitant]
     Active Substance: VITAMIN D NOS
     Indication: Prophylaxis
     Dosage: UNK
     Dates: start: 20200401
  7. ACYCLOVIR [Concomitant]
     Active Substance: ACYCLOVIR
     Indication: Ophthalmic herpes simplex
     Dosage: UNK
     Dates: start: 20200115
  8. LACRI LUBE [Concomitant]
     Indication: Prophylaxis
     Dosage: UNK EYE OINTMENT
     Dates: start: 20160101
  9. LORATADINE [Concomitant]
     Active Substance: LORATADINE
     Indication: Prophylaxis
     Dosage: UNK
     Dates: start: 20190501
  10. CYPROTERONE ACETATE\ETHINYL ESTRADIOL [Concomitant]
     Active Substance: CYPROTERONE ACETATE\ETHINYL ESTRADIOL
     Indication: Contraception
     Dosage: UNK
     Dates: start: 20181018
  11. HYALURONATE SODIUM\TREHALOSE [Concomitant]
     Active Substance: HYALURONATE SODIUM\TREHALOSE
     Indication: Prophylaxis
     Dosage: UNK
     Dates: start: 20200114
  12. XAILIN [Concomitant]
     Indication: Prophylaxis
     Dosage: UNK
     Dates: start: 20200114
  13. PREDSOL [PREDNISOLONE] [Concomitant]
     Indication: Prophylaxis
     Dosage: UNK
     Dates: start: 20200114
  14. CYCLOSPORINE [Concomitant]
     Active Substance: CYCLOSPORINE
     Indication: Prophylaxis
     Dosage: UNK
     Dates: start: 20200114
  15. OPTAZOL [Concomitant]
     Indication: Prophylaxis
     Dosage: UNK
     Dates: start: 20200114

REACTIONS (1)
  - Ophthalmic herpes simplex [Recovering/Resolving]

NARRATIVE: CASE EVENT DATE: 20211109
